FAERS Safety Report 12196047 (Version 3)
Quarter: 2016Q2

REPORT INFORMATION
  Report Type: Spontaneous
  Country: SK (occurrence: SK)
  Receive Date: 20160321
  Receipt Date: 20160408
  Transmission Date: 20160815
  Serious: Yes (Life-Threatening, Hospitalization, Other)
  Sender: FDA-Public Use
  Company Number: SK-GILEAD-2016-0204100

PATIENT
  Age: 66 Year
  Sex: Male
  Weight: 110 kg

DRUGS (9)
  1. KANAVIT                            /00032401/ [Concomitant]
     Indication: COAGULOPATHY
     Dosage: UNK
     Route: 048
     Dates: start: 20150814, end: 20160211
  2. VEROSPIRON [Concomitant]
     Active Substance: SPIRONOLACTONE
     Indication: HEPATIC CIRRHOSIS
     Dosage: 2 DF, BID
     Route: 048
     Dates: start: 20150814, end: 20160211
  3. THIOCTACID                         /00213801/ [Concomitant]
     Active Substance: .ALPHA.-LIPOIC ACID
     Indication: POLYNEUROPATHY
     Dosage: 1 DF, QD
     Route: 048
     Dates: start: 20150814, end: 20160211
  4. GABAGAMMA [Concomitant]
     Indication: POLYNEUROPATHY
     Dosage: UNK
     Route: 048
     Dates: start: 20150814, end: 20160211
  5. ALPHA D3 [Concomitant]
     Indication: RENAL FAILURE
     Dosage: UNK
     Route: 048
     Dates: start: 20150814, end: 20160211
  6. HARVONI [Suspect]
     Active Substance: LEDIPASVIR\SOFOSBUVIR
     Indication: HEPATITIS C
     Dosage: UNK
     Route: 065
     Dates: end: 20160211
  7. HELICID                            /00661201/ [Concomitant]
     Indication: PROPHYLAXIS AGAINST GASTROINTESTINAL ULCER
     Dosage: 1 DF, BID
     Route: 048
     Dates: start: 20150814, end: 20160211
  8. ENELBIN                            /00247502/ [Concomitant]
     Active Substance: NAFRONYL OXALATE
     Indication: DIABETIC GANGRENE
     Dosage: 1 DF, BID
     Route: 048
     Dates: start: 20150814, end: 20160211
  9. CALCIUM POLYSTYRENE SULFONATE [Concomitant]
     Active Substance: CALCIUM POLYSTYRENE SULFONATE
     Indication: HYPERCALCAEMIA
     Dosage: 1 DF, TID
     Route: 048
     Dates: start: 20150814, end: 20160211

REACTIONS (6)
  - Acute respiratory failure [Recovered/Resolved]
  - Wound infection bacterial [Recovered/Resolved]
  - Cardiac failure acute [Recovered/Resolved with Sequelae]
  - Pulmonary oedema [Recovered/Resolved with Sequelae]
  - Acute kidney injury [Recovered/Resolved with Sequelae]
  - Acinetobacter infection [Recovered/Resolved]

NARRATIVE: CASE EVENT DATE: 20160211
